FAERS Safety Report 5780861-4 (Version None)
Quarter: 2008Q2

REPORT INFORMATION
  Report Type: 
  Country: None (occurrence: None)
  Receive Date: 20080620
  Receipt Date: 20080609
  Transmission Date: 20081010
  Serious: Yes (Hospitalization, Other)
  Sender: FDA-Public Use
  Company Number: ES-PFIZER INC-2008006939

PATIENT
  Sex: Male
  Weight: 75 kg

DRUGS (4)
  1. LYRICA [Suspect]
     Indication: NEURALGIA
     Route: 048
     Dates: start: 20070919, end: 20071117
  2. ACETAMINOPHEN [Concomitant]
  3. IBUROFEN [Concomitant]
  4. DIAZEPAM [Concomitant]

REACTIONS (4)
  - DERMATITIS EXFOLIATIVE [None]
  - DYSAESTHESIA [None]
  - DYSPHEMIA [None]
  - HYPERHIDROSIS [None]
